FAERS Safety Report 4721745-X (Version None)
Quarter: 2005Q3

REPORT INFORMATION
  Report Type: 
  Country: None (occurrence: None)
  Receive Date: 20050721
  Receipt Date: 20050325
  Transmission Date: 20060218
  Serious: No
  Sender: FDA-Public Use
  Company Number: US-BRISTOL-MYERS SQUIBB COMPANY-12911954

PATIENT
  Age: 76 Year
  Sex: Female
  Weight: 73 kg

DRUGS (6)
  1. COUMADIN [Suspect]
     Indication: CARDIAC ARREST
     Route: 048
     Dates: start: 20040901
  2. CALCIUM + VITAMIN D [Concomitant]
  3. COREG [Concomitant]
     Dates: start: 20041001
  4. COZAAR [Concomitant]
  5. DEMADEX [Concomitant]
     Dates: start: 20050101
  6. POTASSIUM CHLORIDE [Concomitant]
     Dates: start: 20041001

REACTIONS (4)
  - ALOPECIA [None]
  - INTERNATIONAL NORMALISED RATIO INCREASED [None]
  - PRURITUS [None]
  - RASH [None]
